FAERS Safety Report 20899607 (Version 1)
Quarter: 2022Q2

REPORT INFORMATION
  Report Type: Spontaneous
  Country: JP (occurrence: JP)
  Receive Date: 20220601
  Receipt Date: 20220601
  Transmission Date: 20220721
  Serious: Yes (Life-Threatening, Hospitalization, Other)
  Sender: FDA-Public Use
  Company Number: JP-BRISTOL-MYERS SQUIBB COMPANY-2022-019047

PATIENT
  Age: 47 Year
  Sex: Male

DRUGS (2)
  1. ABRAXANE [Suspect]
     Active Substance: PACLITAXEL
     Indication: Pancreatic carcinoma recurrent
     Route: 041
  2. GEMCITABINE [Concomitant]
     Active Substance: GEMCITABINE
     Indication: Pancreatic carcinoma recurrent
     Route: 041

REACTIONS (7)
  - Urinary tract infection [Recovering/Resolving]
  - Splenic infection [Recovering/Resolving]
  - Septic pulmonary embolism [Recovering/Resolving]
  - Disseminated intravascular coagulation [Recovering/Resolving]
  - Septic shock [Recovering/Resolving]
  - Vascular device infection [Recovering/Resolving]
  - Staphylococcal infection [Recovering/Resolving]
